FAERS Safety Report 14567826 (Version 1)
Quarter: 2018Q1

REPORT INFORMATION
  Report Type: Spontaneous
  Country: US (occurrence: US)
  Receive Date: 20180223
  Receipt Date: 20180223
  Transmission Date: 20180509
  Serious: Yes (Hospitalization, Other)
  Sender: FDA-Public Use
  Company Number: US-FERRINGPH-2017FE01247

PATIENT
  Sex: Male

DRUGS (3)
  1. STIMATE [Suspect]
     Active Substance: DESMOPRESSIN ACETATE
     Indication: HAEMORRHAGE
     Dosage: UNK UNK, DAILY
     Route: 065
  2. FACTOR VII (PROCONVERTIN) [Concomitant]
     Active Substance: COAGULATION FACTOR VII HUMAN
     Indication: HAEMORRHAGE
     Dosage: UNK
  3. STIMATE [Suspect]
     Active Substance: DESMOPRESSIN ACETATE
     Dosage: UNK
     Route: 065

REACTIONS (3)
  - Hyponatraemia [Recovered/Resolved]
  - Hyponatraemic seizure [Recovered/Resolved]
  - Intentional product misuse [Recovered/Resolved]

NARRATIVE: CASE EVENT DATE: 1997
